FAERS Safety Report 5207882-4 (Version None)
Quarter: 2007Q1

REPORT INFORMATION
  Report Type: 
  Country: None (occurrence: None)
  Receive Date: 20070112
  Receipt Date: 20070105
  Transmission Date: 20070707
  Serious: Yes (Hospitalization)
  Sender: FDA-Public Use
  Company Number: FR-PFIZER INC-2007002538

PATIENT
  Age: 57 Year
  Sex: Male

DRUGS (3)
  1. TAHOR [Suspect]
     Indication: HYPERCHOLESTEROLAEMIA
     Route: 048
  2. ASPIRIN [Suspect]
     Route: 048
  3. KETOPROFEN [Suspect]
     Indication: NEPHROLITHIASIS
     Dates: start: 20061005, end: 20061006

REACTIONS (3)
  - ANAEMIA [None]
  - ASTHENIA [None]
  - DUODENAL ULCER HAEMORRHAGE [None]
